FAERS Safety Report 12824628 (Version 1)
Quarter: 2016Q4

REPORT INFORMATION
  Report Type: Spontaneous
  Country: JP (occurrence: JP)
  Receive Date: 20161007
  Receipt Date: 20161007
  Transmission Date: 20170207
  Serious: Yes (Other)
  Sender: FDA-Public Use
  Company Number: JP-PFIZER INC-2015322792

PATIENT
  Age: 74 Year
  Sex: Male

DRUGS (2)
  1. BRONUCK [Concomitant]
     Active Substance: BROMFENAC SODIUM
     Dosage: 1 GTT, 2X/DAY
     Route: 047
     Dates: start: 20141022, end: 20151209
  2. XALATAN [Suspect]
     Active Substance: LATANOPROST
     Indication: GLAUCOMA
     Dosage: 1 GTT, DAILY
     Route: 047

REACTIONS (2)
  - Cataract [Unknown]
  - Eye irritation [Recovering/Resolving]

NARRATIVE: CASE EVENT DATE: 20150911
